FAERS Safety Report 11624731 (Version 1)
Quarter: 2015Q4

REPORT INFORMATION
  Report Type: Spontaneous
  Country: FR (occurrence: FR)
  Receive Date: 20151013
  Receipt Date: 20151013
  Transmission Date: 20160304
  Serious: Yes (Hospitalization)
  Sender: FDA-Public Use
  Company Number: FR-BIOGENIDEC-2015BI137015

PATIENT
  Age: 44 Year
  Sex: Male

DRUGS (5)
  1. BOTULINUM TOXIN [Concomitant]
     Active Substance: BOTULINUM TOXIN TYPE A
     Indication: NEUROGENIC BLADDER
  2. TEGRETOL [Concomitant]
     Active Substance: CARBAMAZEPINE
  3. GUTRON [Concomitant]
     Active Substance: MIDODRINE
  4. LAROXYL [Concomitant]
     Active Substance: AMITRIPTYLINE
  5. TYSABRI [Suspect]
     Active Substance: NATALIZUMAB
     Indication: MULTIPLE SCLEROSIS
     Route: 042
     Dates: start: 20070801

REACTIONS (1)
  - Orchitis [Recovered/Resolved]

NARRATIVE: CASE EVENT DATE: 20150722
